FAERS Safety Report 12076361 (Version 1)
Quarter: 2016Q1

REPORT INFORMATION
  Report Type: Spontaneous
  Country: TW (occurrence: TW)
  Receive Date: 20160215
  Receipt Date: 20160215
  Transmission Date: 20160526
  Serious: Yes (Hospitalization, Other)
  Sender: FDA-Public Use
  Company Number: TW-PAR PHARMACEUTICAL COMPANIES-2016SCPR015166

PATIENT

DRUGS (2)
  1. KETALAR [Suspect]
     Active Substance: KETAMINE HYDROCHLORIDE
     Dosage: 10-15 G, WEEKLY
  2. KETALAR [Suspect]
     Active Substance: KETAMINE HYDROCHLORIDE
     Indication: SUBSTANCE USE
     Dosage: 5 G, WEEKLY

REACTIONS (5)
  - Obsessive-compulsive disorder [Recovering/Resolving]
  - Mania [Unknown]
  - Major depression [Recovered/Resolved]
  - Condition aggravated [Recovering/Resolving]
  - Drug abuse [Unknown]
